FAERS Safety Report 5673943-9 (Version None)
Quarter: 2008Q2

REPORT INFORMATION
  Report Type: 
  Country: None (occurrence: None)
  Receive Date: 20080226
  Receipt Date: 20070328
  Transmission Date: 20081010
  Serious: Yes (Other)
  Sender: FDA-Public Use
  Company Number: DSA_29760_2007

PATIENT
  Sex: Female

DRUGS (1)
  1. VASOTEC [Suspect]

REACTIONS (2)
  - HYPERSENSITIVITY [None]
  - LIP SWELLING [None]
